FAERS Safety Report 9167489 (Version 1)
Quarter: 2013Q1

REPORT INFORMATION
  Report Type: Spontaneous
  Country: FR (occurrence: FR)
  Receive Date: 20130318
  Receipt Date: 20130318
  Transmission Date: 20140127
  Serious: Yes (Other)
  Sender: FDA-Public Use
  Company Number: FR-JNJFOC-20130304894

PATIENT
  Sex: Male
  Weight: 100 kg

DRUGS (2)
  1. XARELTO [Suspect]
     Indication: CEREBROVASCULAR ACCIDENT PROPHYLAXIS
     Route: 048
     Dates: start: 20121031
  2. ISORYTHM [Interacting]
     Indication: ARRHYTHMIA
     Route: 048
     Dates: start: 20090226

REACTIONS (3)
  - Dysuria [Recovered/Resolved]
  - Pollakiuria [Recovered/Resolved]
  - Drug interaction [Unknown]
